FAERS Safety Report 21210725 (Version 3)
Quarter: 2022Q3

REPORT INFORMATION
  Report Type: Spontaneous
  Country: DK (occurrence: DK)
  Receive Date: 20220815
  Receipt Date: 20220901
  Transmission Date: 20221026
  Serious: Yes (Hospitalization, Other)
  Sender: FDA-Public Use
  Company Number: DK-BAYER-2022A113054

PATIENT
  Age: 48 Year
  Sex: Male

DRUGS (3)
  1. RIVAROXABAN [Suspect]
     Active Substance: RIVAROXABAN
     Indication: Thrombosis
     Dosage: 15 MG, BID, FOR THREE WEEKS?XARELTO 15 MG
     Route: 048
     Dates: start: 20220616
  2. RIVAROXABAN [Suspect]
     Active Substance: RIVAROXABAN
     Dosage: 20 MG, QD
     Route: 048
     Dates: start: 202207
  3. METHYLTESTOSTERONE [Suspect]
     Active Substance: METHYLTESTOSTERONE

REACTIONS (9)
  - Haemorrhage [Unknown]
  - Cardiac arrest [Recovered/Resolved]
  - Dyspnoea [Unknown]
  - Neck pain [Unknown]
  - Gait inability [Unknown]
  - Chest pain [Unknown]
  - Pain in extremity [Unknown]
  - Myalgia [Unknown]
  - Left ventricular dysfunction [Unknown]

NARRATIVE: CASE EVENT DATE: 20220101
